FAERS Safety Report 6054012-5 (Version None)
Quarter: 2009Q1

REPORT INFORMATION
  Report Type: 
  Country: None (occurrence: None)
  Receive Date: 20090127
  Receipt Date: 20090119
  Transmission Date: 20090719
  Serious: Yes (Other)
  Sender: FDA-Public Use
  Company Number: BR-PFIZER INC-2008157840

PATIENT

DRUGS (6)
  1. FRONTAL [Suspect]
     Indication: DEPRESSION
     Dosage: EVERY DAY
     Route: 048
     Dates: start: 20060601, end: 20081101
  2. FRONTAL [Suspect]
     Indication: ANXIETY
  3. FRONTAL [Suspect]
     Indication: PANIC DISORDER
  4. ALPRAZOLAM [Suspect]
     Indication: DEPRESSION
     Dosage: UNK
     Dates: start: 20080101
  5. ALPRAZOLAM [Suspect]
     Indication: ANXIETY
  6. ALPRAZOLAM [Suspect]
     Indication: PANIC DISORDER

REACTIONS (6)
  - ASTHENIA [None]
  - DRUG DEPENDENCE [None]
  - DRUG INEFFECTIVE [None]
  - HEART RATE ABNORMAL [None]
  - PANIC REACTION [None]
  - TREMOR [None]
